FAERS Safety Report 16936994 (Version 3)
Quarter: 2019Q4

REPORT INFORMATION
  Report Type: Spontaneous
  Country: HR (occurrence: HR)
  Receive Date: 20191018
  Receipt Date: 20191114
  Transmission Date: 20200122
  Serious: Yes (Life-Threatening, Hospitalization)
  Sender: FDA-Public Use
  Company Number: HR-ROCHE-2436974

PATIENT
  Age: 83 Year
  Sex: Female
  Weight: 62 kg

DRUGS (16)
  1. GAZYVARO [Suspect]
     Active Substance: OBINUTUZUMAB
     Indication: CHRONIC LYMPHOCYTIC LEUKAEMIA
     Route: 042
     Dates: start: 20190918, end: 20190918
  2. SODIUM CHLORIDE 0.9% [Suspect]
     Active Substance: SODIUM CHLORIDE
     Indication: PREMEDICATION
     Route: 041
     Dates: start: 20190918, end: 20190918
  3. SYNOPEN [CHLOROPYRAMINE HYDROCHLORIDE] [Concomitant]
     Indication: PREMEDICATION
     Route: 041
     Dates: start: 20190918, end: 20190918
  4. RANITIDINE. [Concomitant]
     Active Substance: RANITIDINE
     Indication: PREMEDICATION
     Route: 065
     Dates: start: 20190918, end: 20190918
  5. SOLU-MEDROL [Suspect]
     Active Substance: METHYLPREDNISOLONE SODIUM SUCCINATE
     Indication: PREMEDICATION
     Dosage: MOST RECENT DOSE ON 18/SEP/2019.
     Route: 041
     Dates: start: 20190918
  6. PARACETAMOL [Concomitant]
     Active Substance: ACETAMINOPHEN
     Indication: PREMEDICATION
     Route: 048
     Dates: start: 20190918, end: 20190918
  7. SODIUM CHLORIDE 0.9% [Suspect]
     Active Substance: SODIUM CHLORIDE
     Route: 041
     Dates: start: 20190911, end: 20190911
  8. GRANISETRON [Concomitant]
     Active Substance: GRANISETRON
     Indication: PREMEDICATION
     Route: 065
     Dates: start: 20190918, end: 20190918
  9. GRANISETRON [Concomitant]
     Active Substance: GRANISETRON
     Route: 065
     Dates: start: 20190911, end: 20190911
  10. SOLU-MEDROL [Suspect]
     Active Substance: METHYLPREDNISOLONE SODIUM SUCCINATE
     Route: 041
     Dates: start: 20190911, end: 20190911
  11. DIFENHIDRAMINA [DIPHENHYDRAMINE] [Concomitant]
     Route: 065
     Dates: start: 20190918, end: 20190918
  12. SYNOPEN [CHLOROPYRAMINE HYDROCHLORIDE] [Concomitant]
     Route: 041
     Dates: start: 20190911, end: 20190911
  13. GAZYVARO [Suspect]
     Active Substance: OBINUTUZUMAB
     Indication: CHRONIC LYMPHOCYTIC LEUKAEMIA
     Route: 041
     Dates: start: 20190911, end: 20190911
  14. DIFENHIDRAMINA [DIPHENHYDRAMINE] [Concomitant]
     Route: 065
     Dates: start: 20190911, end: 20190911
  15. PARACETAMOL [Concomitant]
     Active Substance: ACETAMINOPHEN
     Route: 048
     Dates: start: 20190911, end: 20190911
  16. RANITIDINE. [Concomitant]
     Active Substance: RANITIDINE
     Route: 065
     Dates: start: 20190911, end: 20190911

REACTIONS (8)
  - Back pain [Recovered/Resolved]
  - Hyperhidrosis [Recovered/Resolved]
  - Asthenia [Recovered/Resolved]
  - Cardiac failure [Recovered/Resolved]
  - Chest discomfort [Recovered/Resolved]
  - Blood pressure increased [Recovered/Resolved]
  - Nausea [Recovered/Resolved]
  - Acute pulmonary oedema [Recovered/Resolved]

NARRATIVE: CASE EVENT DATE: 20190911
